FAERS Safety Report 8484214 (Version 2)
Quarter: 2012Q4

REPORT INFORMATION
  Report Type: 
  Country: IE (occurrence: IE)
  Receive Date: 20120330
  Receipt Date: 20120905
  Transmission Date: 20130627
  Serious: Yes (Hospitalization)
  Sender: FDA-Public Use
  Company Number: IE-ELI_LILLY_AND_COMPANY-IE201203007020

PATIENT
  Age: 74 Year
  Sex: Female

DRUGS (8)
  1. FORSTEO [Suspect]
     Indication: OSTEOPOROSIS
     Dosage: 20 ug, qd
     Dates: start: 20120217
  2. RAMIPRIL [Concomitant]
     Dosage: 2.5 mg, UNK
  3. COMBIVENT [Concomitant]
  4. FLIXOTIDE [Concomitant]
  5. DELTACORTRIL [Concomitant]
     Dosage: UNK
  6. ZOTON [Concomitant]
  7. HISTAL                             /00884301/ [Concomitant]
  8. CALCICHEW-D3 FORTE [Concomitant]

REACTIONS (1)
  - Respiratory tract infection viral [Recovered/Resolved]
